FAERS Safety Report 9067022 (Version 1)
Quarter: 2013Q1

REPORT INFORMATION
  Report Type: Spontaneous
  Country: US (occurrence: US)
  Receive Date: 20130201
  Receipt Date: 20130201
  Transmission Date: 20140127
  Serious: No
  Sender: FDA-Public Use
  Company Number: US-ABBOTT-12P-163-1029365-00

PATIENT
  Age: 25 Year
  Sex: Female
  Weight: 49.03 kg

DRUGS (3)
  1. HUMIRA [Suspect]
     Indication: CROHN^S DISEASE
     Dosage: LOADING DOSE
     Dates: start: 20121228
  2. BENTYL [Concomitant]
     Indication: CROHN^S DISEASE
     Dates: start: 201208
  3. PENTASA [Concomitant]
     Indication: CROHN^S DISEASE
     Dates: start: 201208

REACTIONS (1)
  - Headache [Recovered/Resolved]
